FAERS Safety Report 9706024 (Version 1)
Quarter: 2013Q4

REPORT INFORMATION
  Report Type: Other
  Country: US (occurrence: US)
  Receive Date: 20131122
  Receipt Date: 20131122
  Transmission Date: 20140711
  Serious: Yes (Hospitalization)
  Sender: FDA-Public Use
  Company Number: US-US-EMD SERONO, INC.-7250480

PATIENT
  Age: 48 Year
  Sex: Female

DRUGS (8)
  1. INTERFERON BETA-1A [Suspect]
     Indication: MULTIPLE SCLEROSIS
  2. METHYLPREDNISOLONE [Suspect]
     Indication: VISUAL ACUITY REDUCED
     Route: 042
  3. METHYLPREDNISOLONE [Suspect]
     Route: 042
  4. METHYLPREDNISOLONE [Suspect]
     Route: 042
  5. METHYLPREDNISOLONE [Suspect]
     Route: 048
  6. VALSARTAN [Concomitant]
     Indication: HYPERTENSION
  7. ASPIRIN                            /00002701/ [Concomitant]
     Indication: HYPERLIPIDAEMIA
  8. ESOMEPRAZOLE [Concomitant]
     Indication: BUNDLE BRANCH BLOCK RIGHT

REACTIONS (5)
  - Substance-induced psychotic disorder [Recovered/Resolved]
  - Mood swings [Recovered/Resolved]
  - Paranoia [Recovered/Resolved]
  - Obsessive-compulsive disorder [Recovered/Resolved]
  - Belligerence [Recovered/Resolved]
